FAERS Safety Report 7753309-8 (Version None)
Quarter: 2011Q3

REPORT INFORMATION
  Report Type: 
  Country: None (occurrence: None)
  Receive Date: 20110829
  Receipt Date: 20101207
  Transmission Date: 20111222
  Serious: Yes (Death)
  Sender: FDA-Public Use
  Company Number: KADN20100237

PATIENT
  Age: 40 Year
  Sex: Male

DRUGS (7)
  1. SERTRALINE HYDROCHLORIDE [Suspect]
     Indication: PRODUCT USED FOR UNKNOWN INDICATION
  2. HYDROCODONE [Suspect]
     Indication: PRODUCT USED FOR UNKNOWN INDICATION
  3. TEMAZEPAM [Suspect]
     Indication: PRODUCT USED FOR UNKNOWN INDICATION
  4. CODEINE SUL TAB [Suspect]
     Indication: PRODUCT USED FOR UNKNOWN INDICATION
  5. CANNABIS [Suspect]
     Indication: PRODUCT USED FOR UNKNOWN INDICATION
  6. KADIAN [Suspect]
     Indication: PRODUCT USED FOR UNKNOWN INDICATION
  7. DIAZEPAM [Suspect]
     Indication: PRODUCT USED FOR UNKNOWN INDICATION

REACTIONS (6)
  - ACCIDENTAL OVERDOSE [None]
  - HEPATOSPLENOMEGALY [None]
  - CARDIOMEGALY [None]
  - HEPATIC STEATOSIS [None]
  - HYPERTROPHIC CARDIOMYOPATHY [None]
  - TOXICITY TO VARIOUS AGENTS [None]
